FAERS Safety Report 25817829 (Version 1)
Quarter: 2025Q3

REPORT INFORMATION
  Report Type: Spontaneous
  Country: EU (occurrence: EU)
  Receive Date: 20250918
  Receipt Date: 20250918
  Transmission Date: 20251021
  Serious: Yes (Other)
  Sender: SANDOZ
  Company Number: EU-CELLTRION INC.-2025FR030925

PATIENT
  Age: 77 Year
  Sex: Male

DRUGS (1)
  1. ADALIMUMAB [Suspect]
     Active Substance: ADALIMUMAB
     Indication: Ankylosing spondylitis
     Dosage: 50 MG, EVERY 2 WEEKS
     Route: 065

REACTIONS (2)
  - Whipple^s disease [Recovering/Resolving]
  - Overdose [Unknown]
